FAERS Safety Report 5396775-8 (Version None)
Quarter: 2007Q3

REPORT INFORMATION
  Report Type: 
  Country: None (occurrence: None)
  Receive Date: 20070725
  Receipt Date: 20070717
  Transmission Date: 20080115
  Serious: Yes (Other)
  Sender: FDA-Public Use
  Company Number: DE-ROCHE-471404

PATIENT
  Age: 50 Year
  Sex: Female
  Weight: 66 kg

DRUGS (2)
  1. PEGASYS [Suspect]
     Dosage: FORM:SYRINGE.
     Route: 058
     Dates: start: 20040101
  2. INFERAX [Suspect]
     Dosage: DRUG NAME: INFERAX.
     Route: 058
     Dates: start: 20020301, end: 20040101

REACTIONS (1)
  - ANAEMIA MACROCYTIC [None]
